FAERS Safety Report 6966382-1 (Version None)
Quarter: 2010Q3

REPORT INFORMATION
  Report Type: 
  Country: None (occurrence: None)
  Receive Date: 20100903
  Receipt Date: 20100826
  Transmission Date: 20110219
  Serious: Yes (Life-Threatening, Hospitalization, Other)
  Sender: FDA-Public Use
  Company Number: CA-AMGEN-QUU424181

PATIENT
  Sex: Male

DRUGS (3)
  1. NEULASTA [Suspect]
     Indication: CHEMOTHERAPY
     Route: 058
     Dates: start: 20100717
  2. STREPTOZOCIN [Concomitant]
     Dates: start: 20100713, end: 20100716
  3. FLUOROURACIL [Concomitant]
     Dates: start: 20100713, end: 20100716

REACTIONS (1)
  - FEBRILE NEUTROPENIA [None]
